FAERS Safety Report 4550039-0 (Version None)
Quarter: 2005Q1

REPORT INFORMATION
  Report Type: 
  Country: None (occurrence: None)
  Receive Date: 20050112
  Receipt Date: 20041117
  Transmission Date: 20050727
  Serious: Yes (Other)
  Sender: FDA-Public Use
  Company Number: 200421518GDDC

PATIENT
  Age: 42 Year
  Sex: Female

DRUGS (5)
  1. LANTUS [Suspect]
     Indication: DIABETES MELLITUS INSULIN-DEPENDENT
     Dosage: DOSE: 15-20; DOSE UNIT: UNITS
     Route: 058
     Dates: start: 20031001, end: 20041110
  2. INSUMAN [Concomitant]
     Indication: DIABETES MELLITUS INSULIN-DEPENDENT
     Dosage: DOSE: 2-6; DOSE UNIT: UNITS
     Route: 058
     Dates: start: 20040917, end: 20041117
  3. CARBAMAZEPINE [Concomitant]
     Route: 048
     Dates: start: 19960101, end: 20041101
  4. EUTIROX [Concomitant]
     Indication: HYPOTHYROIDISM
     Route: 048
     Dates: start: 19940101, end: 20041101
  5. LOSARTAN [Concomitant]
     Route: 048
     Dates: start: 19970101, end: 20041101

REACTIONS (3)
  - ARTHRALGIA [None]
  - ARTHRITIS [None]
  - FIBROMYALGIA [None]
